FAERS Safety Report 9271340 (Version 1)
Quarter: 2013Q2

REPORT INFORMATION
  Report Type: Spontaneous
  Country: US (occurrence: US)
  Receive Date: 20130506
  Receipt Date: 20130506
  Transmission Date: 20140414
  Serious: Yes (Hospitalization, Congenital Anomaly, Other)
  Sender: FDA-Public Use
  Company Number: US-ELI_LILLY_AND_COMPANY-US201304008033

PATIENT
  Age: 0 Year
  Sex: 0

DRUGS (4)
  1. PROZAC [Suspect]
     Dosage: 10 MG, QD
     Route: 064
  2. SEROQUEL [Concomitant]
     Dosage: 50 MG, EACH EVENING
     Route: 064
  3. SEROQUEL [Concomitant]
     Dosage: 75 MG, EACH EVENING
     Route: 064
  4. HALODOL [Concomitant]
     Dosage: 2 MG, QD
     Route: 064

REACTIONS (7)
  - Supraventricular tachycardia [Unknown]
  - Neonatal respiratory distress syndrome [Unknown]
  - Hypospadias [Unknown]
  - Feeding disorder neonatal [Unknown]
  - Cough [Unknown]
  - Pyrexia [Unknown]
  - Foetal exposure during pregnancy [Recovered/Resolved]
